FAERS Safety Report 25582137 (Version 1)
Quarter: 2025Q3

REPORT INFORMATION
  Report Type: Spontaneous
  Country: AU (occurrence: AU)
  Receive Date: 20250719
  Receipt Date: 20250719
  Transmission Date: 20251021
  Serious: Yes (Other)
  Sender: RANBAXY
  Company Number: AU-SUN PHARMACEUTICAL INDUSTRIES LTD-2025R1-517782

PATIENT
  Age: 43 Year
  Sex: Female

DRUGS (6)
  1. DASATINIB [Suspect]
     Active Substance: DASATINIB
     Indication: Product used for unknown indication
     Route: 065
     Dates: start: 201604
  2. IMATINIB [Suspect]
     Active Substance: IMATINIB
     Indication: Philadelphia positive chronic myeloid leukaemia
     Route: 065
     Dates: start: 201508
  3. IMATINIB [Suspect]
     Active Substance: IMATINIB
     Route: 065
     Dates: start: 201806
  4. IMATINIB [Suspect]
     Active Substance: IMATINIB
     Route: 065
     Dates: start: 202001
  5. NILOTINIB [Suspect]
     Active Substance: NILOTINIB
     Indication: Product used for unknown indication
     Route: 065
     Dates: start: 201507
  6. ASCIMINIB [Suspect]
     Active Substance: ASCIMINIB
     Indication: Philadelphia positive chronic myeloid leukaemia
     Route: 065
     Dates: start: 202005

REACTIONS (10)
  - Abdominal pain [Unknown]
  - Cytopenia [Unknown]
  - Fatigue [Unknown]
  - Lipase increased [Not Recovered/Not Resolved]
  - Myalgia [Not Recovered/Not Resolved]
  - Nausea [Recovered/Resolved]
  - Pancreatitis [Not Recovered/Not Resolved]
  - Toxicity to various agents [Unknown]
  - Drug intolerance [Unknown]
  - Therapeutic response decreased [Unknown]

NARRATIVE: CASE EVENT DATE: 20171101
